FAERS Safety Report 20114155 (Version 2)
Quarter: 2021Q4

REPORT INFORMATION
  Report Type: Spontaneous
  Country: CA (occurrence: CA)
  Receive Date: 20211125
  Receipt Date: 20211207
  Transmission Date: 20220303
  Serious: Yes (Hospitalization)
  Sender: FDA-Public Use
  Company Number: CA-TEVA-2021-CA-1979995

PATIENT

DRUGS (2)
  1. ETOPOSIDE [Suspect]
     Active Substance: ETOPOSIDE
     Indication: Ovarian germ cell endodermal sinus tumour stage I
     Dosage: RECEIVED FOUR PLANNED CYCLES OF ADJUVANT CHEMOTHERAPY
     Route: 064
  2. CISPLATIN [Suspect]
     Active Substance: CISPLATIN
     Indication: Ovarian germ cell endodermal sinus tumour stage I
     Dosage: RECEIVED FOUR PLANNED CYCLES OF ADJUVANT CHEMOTHERAPY
     Route: 064

REACTIONS (2)
  - Foetal growth restriction [Recovering/Resolving]
  - Foetal exposure during pregnancy [Unknown]
